FAERS Safety Report 8374663-2 (Version None)
Quarter: 2012Q2

REPORT INFORMATION
  Report Type: 
  Country: None (occurrence: None)
  Receive Date: 20120521
  Receipt Date: 20111118
  Transmission Date: 20120825
  Serious: No
  Sender: FDA-Public Use
  Company Number: US-ASTRAZENECA-2011SE73982

PATIENT
  Age: 64 Year
  Sex: Female

DRUGS (5)
  1. PRILOSEC OTC [Suspect]
     Route: 048
     Dates: start: 20111106
  2. REBIF [Concomitant]
     Dosage: UNKNOWN
  3. XANAX [Concomitant]
     Dosage: UNKNOWN
  4. BENICAR [Concomitant]
     Dosage: UNKNOWN
  5. ATENOLOL [Concomitant]
     Dosage: UNKNOWN

REACTIONS (2)
  - DECREASED APPETITE [None]
  - DRY MOUTH [None]
